FAERS Safety Report 5955190-6 (Version None)
Quarter: 2008Q4

REPORT INFORMATION
  Report Type: 
  Country: None (occurrence: None)
  Receive Date: 20081117
  Receipt Date: 20081106
  Transmission Date: 20090506
  Serious: Yes (Other)
  Sender: FDA-Public Use
  Company Number: US-BIOGENIDEC-2008BI029952

PATIENT
  Sex: Female

DRUGS (1)
  1. TYSABRI [Suspect]
     Route: 042
     Dates: start: 20070420

REACTIONS (1)
  - ABORTION SPONTANEOUS [None]
